FAERS Safety Report 11224216 (Version 4)
Quarter: 2015Q3

REPORT INFORMATION
  Report Type: Report from Study
  Country: US (occurrence: US)
  Receive Date: 20150629
  Receipt Date: 20150716
  Transmission Date: 20151125
  Serious: Yes (Hospitalization)
  Sender: FDA-Public Use
  Company Number: US-JNJFOC-20150617910

PATIENT
  Age: 16 Year
  Sex: Female
  Weight: 45.2 kg

DRUGS (10)
  1. REMICADE [Suspect]
     Active Substance: INFLIXIMAB
     Indication: INFLAMMATORY BOWEL DISEASE
     Route: 042
     Dates: start: 201005, end: 20110413
  2. 6-MERCAPTOPURINE [Concomitant]
     Active Substance: MERCAPTOPURINE
     Route: 065
  3. DIFLUCAN [Concomitant]
     Active Substance: FLUCONAZOLE
     Route: 065
  4. ONDANSETRON [Concomitant]
     Active Substance: ONDANSETRON
     Route: 065
  5. FERROUS FUMARATE [Concomitant]
     Active Substance: FERROUS FUMARATE
     Route: 065
  6. HUMIRA [Concomitant]
     Active Substance: ADALIMUMAB
     Route: 065
     Dates: start: 20110604
  7. ERYTHROMYCIN ETHYLSUCCINATE. [Concomitant]
     Active Substance: ERYTHROMYCIN ETHYLSUCCINATE
     Route: 065
  8. NEXIUM [Concomitant]
     Active Substance: ESOMEPRAZOLE MAGNESIUM
     Route: 065
  9. NORETHINDRONE. [Concomitant]
     Active Substance: NORETHINDRONE
     Route: 065
  10. PREDNISONE. [Concomitant]
     Active Substance: PREDNISONE
     Route: 065

REACTIONS (1)
  - Colitis ulcerative [Recovered/Resolved]

NARRATIVE: CASE EVENT DATE: 20141010
